FAERS Safety Report 16784764 (Version 1)
Quarter: 2019Q3

REPORT INFORMATION
  Report Type: Spontaneous
  Country: DE (occurrence: DE)
  Receive Date: 20190909
  Receipt Date: 20190909
  Transmission Date: 20191005
  Serious: Yes (Hospitalization)
  Sender: FDA-Public Use
  Company Number: DE-AUROBINDO-AUR-APL-2019-046316

PATIENT

DRUGS (15)
  1. ARIPIPRAZOLE. [Suspect]
     Active Substance: ARIPIPRAZOLE
     Dosage: 5 MILLIGRAM, ONCE A DAY, ON THE TENTH TREATMENT DAY SINCE ADMISSION
     Route: 065
  2. RISPERIDONE. [Concomitant]
     Active Substance: RISPERIDONE
     Indication: PRODUCT USED FOR UNKNOWN INDICATION
     Dosage: 2 MILLIGRAM
     Route: 065
  3. LORAZEPAM. [Concomitant]
     Active Substance: LORAZEPAM
     Indication: PRODUCT USED FOR UNKNOWN INDICATION
     Dosage: 0.75 MILLIGRAM, ONCE A DAY
     Route: 065
  4. QUETIAPINE. [Concomitant]
     Active Substance: QUETIAPINE
     Indication: SOMNOLENCE
     Dosage: 25 MILLIGRAM, ONCE A DAY
     Route: 065
  5. LEVOTHYROXINE. [Concomitant]
     Active Substance: LEVOTHYROXINE
     Indication: PRODUCT USED FOR UNKNOWN INDICATION
     Dosage: 100 MICROGRAM, ONCE A DAY
     Route: 065
  6. MIRTAZAPINE. [Concomitant]
     Active Substance: MIRTAZAPINE
     Indication: DEPRESSION
     Dosage: 30 MILLIGRAM, ONCE A DAY FOR ABOUT 6 MONTHS
     Route: 065
  7. BISOPROLOL [Concomitant]
     Active Substance: BISOPROLOL
     Indication: PRODUCT USED FOR UNKNOWN INDICATION
     Dosage: 2.5 MILLIGRAM, ONCE A DAY
     Route: 065
  8. ARIPIPRAZOLE. [Suspect]
     Active Substance: ARIPIPRAZOLE
     Dosage: 20 MILLIGRAM, ONCE A DAY ON 25TH TREATMENT DAY
     Route: 065
  9. ARIPIPRAZOLE. [Suspect]
     Active Substance: ARIPIPRAZOLE
     Indication: PSYCHOTIC SYMPTOM
     Dosage: 5 MILLIGRAM, DAILY, ASCENDING DOSES OF 5 MG / D ON THE 10TH DAY, 10 MG / D ON THE 15TH DAY
     Route: 065
  10. ARIPIPRAZOLE. [Suspect]
     Active Substance: ARIPIPRAZOLE
     Dosage: 10 MILLIGRAM, ONCE A DAY, ON 15TH TREATMENT DAY
     Route: 065
  11. TORASEMIDE [Concomitant]
     Active Substance: TORSEMIDE
     Indication: PRODUCT USED FOR UNKNOWN INDICATION
     Dosage: 20 MILLIGRAM, ONCE A DAY
     Route: 065
  12. AMLODIPINE [Concomitant]
     Active Substance: AMLODIPINE BESYLATE
     Indication: PRODUCT USED FOR UNKNOWN INDICATION
     Dosage: 5 MILLIGRAM, ONCE A DAY
     Route: 065
  13. FOLIC ACID. [Concomitant]
     Active Substance: FOLIC ACID
     Indication: PRODUCT USED FOR UNKNOWN INDICATION
     Dosage: 5 MILLIGRAM, ONCE A DAY
     Route: 065
  14. DONEPEZIL. [Concomitant]
     Active Substance: DONEPEZIL
     Indication: PRODUCT USED FOR UNKNOWN INDICATION
     Dosage: 10 MILLIGRAM, ONCE A DAY  FOR ABOUT 18 MONTHS
     Route: 065
  15. FERRO SANOL [Concomitant]
     Active Substance: FERROUS GLYCINE SULFATE
     Indication: PRODUCT USED FOR UNKNOWN INDICATION
     Dosage: 50 MILLIGRAM, ONCE A DAY
     Route: 065

REACTIONS (3)
  - Libido increased [Recovered/Resolved]
  - Hypersexuality [Recovered/Resolved]
  - Sedation [Unknown]
